FAERS Safety Report 8313871-3 (Version None)
Quarter: 2012Q2

REPORT INFORMATION
  Report Type: 
  Country: None (occurrence: None)
  Receive Date: 20120426
  Receipt Date: 20120417
  Transmission Date: 20120825
  Serious: Yes (Hospitalization)
  Sender: FDA-Public Use
  Company Number: JP-ASTRAZENECA-2012SE20681

PATIENT
  Age: 49 Year
  Sex: Female

DRUGS (1)
  1. ROPIVACAINE HYDROCHLORIDE [Suspect]
     Indication: POSTOPERATIVE ANALGESIA
     Dosage: 2 MG/ML
     Route: 008

REACTIONS (3)
  - PERIPHERAL MOTOR NEUROPATHY [None]
  - SPINAL CORD INJURY [None]
  - PERIPHERAL SENSORY NEUROPATHY [None]
